FAERS Safety Report 8666884 (Version 3)
Quarter: 2012Q4

REPORT INFORMATION
  Report Type: 
  Country: US (occurrence: US)
  Receive Date: 20120716
  Receipt Date: 20121101
  Transmission Date: 20130627
  Serious: Yes (Other)
  Sender: FDA-Public Use
  Company Number: US-ELI_LILLY_AND_COMPANY-US201207003727

PATIENT
  Age: 58 None
  Sex: Male

DRUGS (4)
  1. FORTEO [Suspect]
     Indication: OSTEOPOROSIS
     Dosage: 20 ug, qd
     Dates: start: 20120620, end: 20120719
  2. COUMADIN [Concomitant]
     Indication: PRODUCT USED FOR UNKNOWN INDICATION
     Dosage: UNK
     Dates: start: 2002
  3. FENTANYL [Concomitant]
     Indication: ARTHRALGIA
  4. BETHANECHOL CHLORIDE [Concomitant]
     Indication: NAUSEA

REACTIONS (25)
  - Loss of consciousness [Unknown]
  - Arthralgia [Unknown]
  - Frustration [Unknown]
  - Muscle spasms [Unknown]
  - Influenza [Unknown]
  - Dementia [Unknown]
  - Malaise [Unknown]
  - Mood altered [Unknown]
  - Pain [Unknown]
  - Pyrexia [Recovered/Resolved]
  - Hyperhidrosis [Unknown]
  - Staphylococcal infection [Unknown]
  - Herpes zoster [Unknown]
  - Migraine [Not Recovered/Not Resolved]
  - Fall [Unknown]
  - Renal injury [Unknown]
  - Injection site haematoma [Unknown]
  - Asthenia [Unknown]
  - Joint swelling [Recovered/Resolved]
  - Bone pain [Not Recovered/Not Resolved]
  - Gait disturbance [Unknown]
  - Insomnia [Unknown]
  - Balance disorder [Unknown]
  - Drug dependence [Unknown]
  - Vertigo [Unknown]
